FAERS Safety Report 16772872 (Version 1)
Quarter: 2019Q3

REPORT INFORMATION
  Report Type: Spontaneous
  Country: FR (occurrence: FR)
  Receive Date: 20190904
  Receipt Date: 20190904
  Transmission Date: 20191005
  Serious: Yes (Other)
  Sender: FDA-Public Use
  Company Number: FR-MYLANLABS-2019M1083065

PATIENT
  Age: 52 Year
  Sex: Male

DRUGS (3)
  1. HYDROCORTISONE. [Suspect]
     Active Substance: HYDROCORTISONE
     Indication: HYPOPHYSITIS
     Dosage: IN THREE DOSES
     Route: 048
  2. HYDROCORTISONE. [Suspect]
     Active Substance: HYDROCORTISONE
     Indication: HYPOPHYSITIS
     Dosage: FOLLOWED BY CONTINUOUS PERFUSION OF 100 MG OVER 24 H
     Route: 042
  3. HYDROCORTISONE. [Suspect]
     Active Substance: HYDROCORTISONE
     Dosage: IN THREE DOSES
     Route: 048

REACTIONS (1)
  - Adrenocorticotropic hormone deficiency [Not Recovered/Not Resolved]
